FAERS Safety Report 5672392-7 (Version None)
Quarter: 2008Q1

REPORT INFORMATION
  Report Type: 
  Country: None (occurrence: None)
  Receive Date: 20080318
  Receipt Date: 20080318
  Transmission Date: 20080703
  Serious: No
  Sender: FDA-Public Use
  Company Number: None

PATIENT
  Sex: Female
  Weight: 102.9665 kg

DRUGS (2)
  1. PROPRANOLOL HCL [Suspect]
     Indication: CORONARY ARTERY DISEASE
     Dosage: 160MG 1 TAB QD PO
     Route: 048
     Dates: start: 20071220, end: 20080114
  2. PROPRANOLOL HCL [Suspect]
     Indication: HYPERTENSION
     Dosage: 160MG 1 TAB QD PO
     Route: 048
     Dates: start: 20071220, end: 20080114

REACTIONS (4)
  - DIZZINESS [None]
  - ECONOMIC PROBLEM [None]
  - PALPITATIONS [None]
  - THERAPEUTIC RESPONSE UNEXPECTED WITH DRUG SUBSTITUTION [None]
